FAERS Safety Report 8671876 (Version 3)
Quarter: 2012Q4

REPORT INFORMATION
  Report Type: 
  Country: US (occurrence: US)
  Receive Date: 20120718
  Receipt Date: 20120914
  Transmission Date: 20130627
  Serious: Yes (Hospitalization, Other)
  Sender: FDA-Public Use
  Company Number: US-009507513-1207USA004894

PATIENT

DRUGS (3)
  1. PEGINTRON [Suspect]
     Dosage: UNK
     Dates: start: 20120604, end: 20120815
  2. REBETOL [Suspect]
     Dosage: UNK
     Dates: start: 20120604, end: 20120815
  3. TELAPREVIR [Concomitant]
     Indication: HEPATITIS C
     Dosage: UNK
     Dates: start: 20120604, end: 20120815

REACTIONS (11)
  - Transfusion [Unknown]
  - Nephrolithiasis [Unknown]
  - Eating disorder [Unknown]
  - Vomiting [Not Recovered/Not Resolved]
  - Sepsis [Unknown]
  - Sepsis [Unknown]
  - Diarrhoea [Unknown]
  - Depressed mood [Unknown]
  - Pyrexia [Unknown]
  - Fatigue [Unknown]
  - Drug dose omission [Unknown]
